FAERS Safety Report 7017761-8 (Version None)
Quarter: 2010Q3

REPORT INFORMATION
  Report Type: 
  Country: None (occurrence: None)
  Receive Date: 20100927
  Receipt Date: 20100927
  Transmission Date: 20110219
  Serious: No
  Sender: FDA-Public Use
  Company Number: None

PATIENT
  Age: 68 Year
  Sex: Female
  Weight: 79.3795 kg

DRUGS (1)
  1. ACTONEL [Suspect]
     Indication: OSTEOPENIA
     Dosage: 1 TABLET ONCE A MONTH PO
     Route: 048
     Dates: start: 20051104, end: 20100904

REACTIONS (7)
  - BACK PAIN [None]
  - BONE PAIN [None]
  - CYSTITIS [None]
  - FATIGUE [None]
  - INFLUENZA [None]
  - PRURITUS [None]
  - URINARY TRACT INFECTION [None]
